FAERS Safety Report 17552767 (Version 1)
Quarter: 2020Q1

REPORT INFORMATION
  Report Type: Spontaneous
  Country: FR (occurrence: FR)
  Receive Date: 20200317
  Receipt Date: 20200317
  Transmission Date: 20200409
  Serious: Yes (Life-Threatening, Hospitalization, Other)
  Sender: FDA-Public Use
  Company Number: FR-JNJFOC-20200313772

PATIENT
  Age: 15 Year
  Sex: Female

DRUGS (1)
  1. TRAMADOL/APAP [Suspect]
     Active Substance: ACETAMINOPHEN\TRAMADOL
     Indication: PRODUCT USED FOR UNKNOWN INDICATION
     Dosage: UNK
     Route: 048

REACTIONS (6)
  - Pneumonia aspiration [Recovered/Resolved]
  - Multiple organ dysfunction syndrome [Recovered/Resolved]
  - Cardiac failure acute [Recovered/Resolved]
  - Acute hepatic failure [Recovered/Resolved]
  - Coma [Recovered/Resolved]
  - Drug abuse [Recovered/Resolved]
